FAERS Safety Report 11277412 (Version 1)
Quarter: 2015Q3

REPORT INFORMATION
  Report Type: Spontaneous
  Country: FI (occurrence: FI)
  Receive Date: 20150716
  Receipt Date: 20150716
  Transmission Date: 20151125
  Serious: Yes (Hospitalization)
  Sender: FDA-Public Use
  Company Number: FI-GE HEALTHCARE MEDICAL DIAGNOSTICS-OMPQ-PR-1507S-1074

PATIENT
  Age: 79 Year
  Sex: Female

DRUGS (2)
  1. OMNIPAQUE [Suspect]
     Active Substance: IOHEXOL
     Indication: PRODUCT USED FOR UNKNOWN INDICATION
     Route: 042
     Dates: start: 20150603, end: 20150603
  2. OMNIPAQUE [Suspect]
     Active Substance: IOHEXOL
     Indication: DIAGNOSTIC PROCEDURE

REACTIONS (3)
  - Throat irritation [Unknown]
  - Eye swelling [Unknown]
  - Rash papular [Unknown]

NARRATIVE: CASE EVENT DATE: 20150603
